FAERS Safety Report 7055114-7 (Version None)
Quarter: 2010Q4

REPORT INFORMATION
  Report Type: 
  Country: None (occurrence: None)
  Receive Date: 20101019
  Receipt Date: 20101019
  Transmission Date: 20110411
  Serious: Yes (Hospitalization)
  Sender: FDA-Public Use
  Company Number: None

PATIENT
  Age: 12 Year
  Sex: Female
  Weight: 54.4316 kg

DRUGS (1)
  1. TYGACIL [Suspect]
     Indication: APPENDICITIS PERFORATED
     Dosage: 50 MG DAILY IV DRIP
     Route: 041
     Dates: start: 20101011, end: 20101015

REACTIONS (3)
  - CONTRAINDICATION TO MEDICAL TREATMENT [None]
  - PYREXIA [None]
  - WHITE BLOOD CELL COUNT INCREASED [None]
